FAERS Safety Report 22110356 (Version 1)
Quarter: 2023Q1

REPORT INFORMATION
  Report Type: Report from Study
  Country: US (occurrence: US)
  Receive Date: 20230317
  Receipt Date: 20230317
  Transmission Date: 20230417
  Serious: Yes (Other)
  Sender: FDA-Public Use
  Company Number: US-BAYER-2023P004884

PATIENT
  Age: 62 Year
  Sex: Female

DRUGS (2)
  1. STIVARGA [Suspect]
     Active Substance: REGORAFENIB
     Indication: Colorectal cancer
     Dosage: 80 MG, QD, FOR 21 DAYS ON 7 DAYS OFF
     Route: 048
     Dates: start: 20230120
  2. STIVARGA [Suspect]
     Active Substance: REGORAFENIB
     Indication: Colon cancer

REACTIONS (13)
  - Neuropathy peripheral [Recovered/Resolved]
  - Off label use [None]
  - Abdominal pain [Recovered/Resolved]
  - Back pain [Recovered/Resolved]
  - Muscle spasms [Recovered/Resolved]
  - Nausea [Recovered/Resolved]
  - Headache [Recovered/Resolved]
  - Rash [Recovered/Resolved]
  - Rash [Recovered/Resolved]
  - Nausea [Recovered/Resolved]
  - Hyperkeratosis [Recovered/Resolved]
  - Headache [Recovered/Resolved]
  - Muscle spasms [Recovered/Resolved]

NARRATIVE: CASE EVENT DATE: 20230120
